FAERS Safety Report 19747452 (Version 2)
Quarter: 2022Q1

REPORT INFORMATION
  Report Type: Spontaneous
  Country: US (occurrence: US)
  Receive Date: 20210825
  Receipt Date: 20220309
  Transmission Date: 20220423
  Serious: Yes (Hospitalization, Other)
  Sender: FDA-Public Use
  Company Number: US-FERRINGPH-2021FE05263

PATIENT
  Age: 36 Year
  Sex: Male
  Weight: 83.44 kg

DRUGS (20)
  1. DESMOPRESSIN [Suspect]
     Active Substance: DESMOPRESSIN
     Indication: Product used for unknown indication
     Dosage: 1 SPAY EACH NOSTRIL DAILY AT 9PM
     Route: 045
     Dates: start: 20070412, end: 20070625
  2. DESMOPRESSIN [Suspect]
     Active Substance: DESMOPRESSIN
     Indication: Urinary incontinence
     Dosage: .2 MG AT BEDTIME
     Route: 048
     Dates: start: 20120829, end: 20160317
  3. DESMOPRESSIN [Suspect]
     Active Substance: DESMOPRESSIN
     Dosage: .1 MG, ONCE DAILY AT BEDTIME
     Route: 048
     Dates: start: 20160316, end: 20160317
  4. DESMOPRESSIN [Suspect]
     Active Substance: DESMOPRESSIN
     Dosage: .1 MG, ONCE DAILY
     Route: 048
     Dates: start: 20160318, end: 20160404
  5. DESMOPRESSIN [Suspect]
     Active Substance: DESMOPRESSIN
     Dosage: 0.2 MG, ONCE DAILY
     Route: 048
     Dates: start: 20160318, end: 20160404
  6. DESMOPRESSIN [Suspect]
     Active Substance: DESMOPRESSIN
     Dosage: 0.3 MG, ONCE/SINGLE
     Route: 048
     Dates: start: 20160317, end: 20160317
  7. DESMOPRESSIN [Suspect]
     Active Substance: DESMOPRESSIN
     Dosage: 0.2 MG AT BEDTIME
     Route: 048
     Dates: start: 20160404, end: 20160421
  8. DESMOPRESSIN [Suspect]
     Active Substance: DESMOPRESSIN
     Dosage: 0.1 MG AT BEDTIME
     Route: 048
     Dates: start: 20160404, end: 20160421
  9. DESMOPRESSIN [Suspect]
     Active Substance: DESMOPRESSIN
     Dosage: 0.2 MG MORNING AND BEDTIME
     Route: 048
     Dates: start: 20160421, end: 20180618
  10. CLOZARIL [Concomitant]
     Active Substance: CLOZAPINE
     Indication: Product used for unknown indication
     Dosage: 200MG QAM, 400MG QHS
     Route: 048
     Dates: start: 20070428, end: 20070623
  11. NORTRIPTYLINE [Concomitant]
     Active Substance: NORTRIPTYLINE
     Indication: Product used for unknown indication
     Dosage: 50 MG, AT BEDTIME
     Route: 048
     Dates: start: 20070515, end: 2007
  12. LEXAPRO [Concomitant]
     Active Substance: ESCITALOPRAM OXALATE
     Indication: Product used for unknown indication
     Dosage: 20 MG, QAM
     Route: 048
     Dates: start: 200703, end: 20070623
  13. VALIUM [Concomitant]
     Active Substance: DIAZEPAM
     Indication: Product used for unknown indication
     Dosage: 5 MG, AT BEDTIME
     Route: 048
  14. VALIUM [Concomitant]
     Active Substance: DIAZEPAM
     Dosage: 2 MG, DAILY AT 8AM, 4PM + 8PM
     Route: 048
     Dates: start: 20070411, end: 20070623
  15. DILTIAZEM [Concomitant]
     Active Substance: DILTIAZEM
     Indication: Product used for unknown indication
     Dosage: 120 MG, 2 TIMES DAILY
     Route: 048
  16. DILTIAZEM [Concomitant]
     Active Substance: DILTIAZEM
     Dosage: 120 MG, AT 8AM
     Route: 048
     Dates: start: 20070330, end: 20070623
  17. VISTARIL [Concomitant]
     Active Substance: HYDROXYZINE PAMOATE
     Indication: Agitation
     Dosage: 50 MG, Q 6 HRS AS NEEDED
     Route: 048
  18. HALOPERIDOL [Concomitant]
     Active Substance: HALOPERIDOL
     Indication: Product used for unknown indication
     Dosage: 5 MG, DAILY AT 8PM
     Route: 048
     Dates: start: 20070507, end: 200706
  19. OXYBUTYNIN [Concomitant]
     Active Substance: OXYBUTYNIN
     Indication: Product used for unknown indication
     Dosage: 5 MG, DAILY AT 9PM
     Route: 048
     Dates: start: 20070330
  20. ATROPINE SULFATE [Concomitant]
     Active Substance: ATROPINE SULFATE
     Indication: Product used for unknown indication
     Dosage: UNK, DAILY AT 8AM AND 9PM
     Route: 060
     Dates: start: 2007, end: 20070623

REACTIONS (16)
  - Hyponatraemia [Unknown]
  - Hyponatraemic seizure [Unknown]
  - Respiratory distress [Recovered/Resolved]
  - Coma [Unknown]
  - Fall [Unknown]
  - Brain injury [Unknown]
  - Delirium [Unknown]
  - Neck injury [Unknown]
  - Back injury [Unknown]
  - Haemorrhage [Unknown]
  - Diabetes mellitus [Unknown]
  - Amnesia [Unknown]
  - Gait inability [Unknown]
  - Skin laceration [Unknown]
  - Traumatic haematoma [Unknown]
  - Hypertension [Unknown]

NARRATIVE: CASE EVENT DATE: 20070601
